FAERS Safety Report 4449291-1 (Version None)
Quarter: 2004Q3

REPORT INFORMATION
  Report Type: 
  Country: None (occurrence: None)
  Receive Date: 20040913
  Receipt Date: 20040826
  Transmission Date: 20050211
  Serious: Yes (Hospitalization)
  Sender: FDA-Public Use
  Company Number: 2004-BP-07272BP

PATIENT
  Age: 40 Year
  Sex: Female

DRUGS (2)
  1. CATAPRES [Suspect]
     Indication: HOT FLUSH
     Dosage: 0.1 MG (2.5 MG, 1 PATCH Q WEEK), TO
     Route: 061
     Dates: start: 20040725
  2. CATAPRES [Suspect]
     Indication: HYPERTENSION
     Dosage: 0.1 MG (2.5 MG, 1 PATCH Q WEEK), TO
     Route: 061
     Dates: start: 20040725

REACTIONS (4)
  - ABDOMINAL PAIN [None]
  - ANAEMIA [None]
  - VAGINAL DISCHARGE [None]
  - VOMITING [None]
